FAERS Safety Report 18786226 (Version 1)
Quarter: 2021Q1

REPORT INFORMATION
  Report Type: Spontaneous
  Country: US (occurrence: US)
  Receive Date: 20210125
  Receipt Date: 20210125
  Transmission Date: 20210419
  Serious: Yes (Life-Threatening, Hospitalization)
  Sender: FDA-Public Use
  Company Number: US-HPG BRANDS-2105797

PATIENT
  Age: 40 Year
  Sex: Female

DRUGS (1)
  1. ANTIBACTERIAL HAND SANITIZER GEL [Suspect]
     Active Substance: ALCOHOL
     Route: 061
     Dates: start: 20200629, end: 20200629

REACTIONS (1)
  - Anaphylactic reaction [Recovered/Resolved]

NARRATIVE: CASE EVENT DATE: 20200629
